FAERS Safety Report 16207159 (Version 1)
Quarter: 2019Q2

REPORT INFORMATION
  Report Type: Spontaneous
  Country: US (occurrence: US)
  Receive Date: 20190313
  Receipt Date: 20190313
  Transmission Date: 20190711
  Serious: No
  Sender: FDA-Public Use
  Company Number: None

PATIENT
  Age: 80 Year
  Sex: Male
  Weight: 69.85 kg

DRUGS (4)
  1. FIRMAGON [Suspect]
     Active Substance: DEGARELIX ACETATE
     Indication: PROSTATE CANCER
     Route: 058
     Dates: start: 201810
  2. FIRMAGON [Suspect]
     Active Substance: DEGARELIX ACETATE
     Indication: PRODUCT USED FOR UNKNOWN INDICATION
     Route: 058
     Dates: start: 201810
  3. FIRMAGON [Suspect]
     Active Substance: DEGARELIX ACETATE
     Indication: PROSTATE CANCER
     Route: 058
     Dates: start: 201810
  4. FIRMAGON [Suspect]
     Active Substance: DEGARELIX ACETATE
     Indication: BONE CANCER
     Route: 058
     Dates: start: 201810

REACTIONS (7)
  - Injection site pain [None]
  - Injection site rash [None]
  - Injection site swelling [None]
  - Injection site bruising [None]
  - Product storage error [None]
  - Injection site erythema [None]
  - Injection site pruritus [None]
